FAERS Safety Report 7434978-9 (Version None)
Quarter: 2011Q2

REPORT INFORMATION
  Report Type: 
  Country: None (occurrence: None)
  Receive Date: 20110425
  Receipt Date: 20110415
  Transmission Date: 20111010
  Serious: Yes (Death, Other)
  Sender: FDA-Public Use
  Company Number: CN-ROCHE-771664

PATIENT

DRUGS (4)
  1. MYCOPHENOLATE MOFETIL [Suspect]
     Route: 065
  2. UNSPECIFIED DRUG [Suspect]
     Dosage: THE DRUG WAS ANTI-CD25 MONOCLONAL ANTIBODY.
     Route: 065
  3. CYCLOSPORINE [Suspect]
     Route: 065
  4. METHOTREXATE [Suspect]
     Route: 065

REACTIONS (4)
  - GRAFT VERSUS HOST DISEASE [None]
  - LUNG INFECTION [None]
  - CYTOMEGALOVIRUS VIRAEMIA [None]
  - FUNGAL INFECTION [None]
